FAERS Safety Report 9610710 (Version 1)
Quarter: 2013Q4

REPORT INFORMATION
  Report Type: Spontaneous
  Country: DE (occurrence: DE)
  Receive Date: 20131009
  Receipt Date: 20131009
  Transmission Date: 20140711
  Serious: Yes (Congenital Anomaly)
  Sender: FDA-Public Use
  Company Number: GXKR2013DE003197

PATIENT
  Sex: 0

DRUGS (8)
  1. ENALAPRIL [Suspect]
     Dosage: MATERNAL DOSE: 20 [MG/D ]
     Route: 064
     Dates: end: 20080918
  2. VOTUM [Suspect]
     Dosage: MATERNAL DOSE: 40 [MG/D ]
     Route: 064
     Dates: end: 20080918
  3. CARMEN [Suspect]
     Indication: HYPERTENSION
     Dosage: MATERNAL DOSE: 20 [MG/D ]
     Route: 064
  4. KALETRA [Suspect]
     Dosage: MATERNAL DOSE: 500 [MG/D ] / 2000 [MG/D ]
     Route: 064
  5. TRUVADA [Suspect]
     Dosage: MATERNAL DOSE: 200 [MG/D ] / 245 [MG/D ]
     Route: 064
  6. BELOC-ZOC MITE [Concomitant]
     Dosage: MATERNAL DOSE: 95 [MG/D ]
     Route: 064
     Dates: start: 20080605, end: 20090226
  7. NIFEDIPINE [Concomitant]
     Dosage: MATERNAL DOSE: 40 [MG/D ]
     Route: 064
  8. METHYLDOPA [Concomitant]
     Dosage: MATERNAL DOSE: 750 [MG/D ]
     Route: 064

REACTIONS (3)
  - Kidney duplex [Not Recovered/Not Resolved]
  - Congenital hearing disorder [Not Recovered/Not Resolved]
  - Supernumerary nipple [Not Recovered/Not Resolved]
